FAERS Safety Report 5755691-X (Version None)
Quarter: 2008Q2

REPORT INFORMATION
  Report Type: 
  Country: None (occurrence: None)
  Receive Date: 20080602
  Receipt Date: 20080523
  Transmission Date: 20081010
  Serious: Yes (Hospitalization)
  Sender: FDA-Public Use
  Company Number: CN-ASTRAZENECA-2008AP03745

PATIENT
  Age: 22455 Day
  Sex: Female

DRUGS (4)
  1. SYMBICORT [Suspect]
     Indication: ASTHMA
     Dosage: 160/4.5 UG
     Route: 055
     Dates: start: 20080507, end: 20080515
  2. PULMICORT RESPULES [Suspect]
     Indication: ASTHMA
     Dosage: AEROSOL INHALATION
     Route: 055
     Dates: start: 20080507, end: 20080511
  3. AMINOPHYLLINE [Suspect]
     Indication: ASTHMA
     Route: 042
     Dates: start: 20080507, end: 20080511
  4. HYZAAR [Suspect]
     Indication: HYPERTENSION
     Route: 048

REACTIONS (4)
  - ARRHYTHMIA [None]
  - HYPERTENSION [None]
  - PALPITATIONS [None]
  - TRANSIENT ISCHAEMIC ATTACK [None]
